FAERS Safety Report 6332402-0 (Version None)
Quarter: 2009Q3

REPORT INFORMATION
  Report Type: 
  Country: None (occurrence: None)
  Receive Date: 20090828
  Receipt Date: 20090825
  Transmission Date: 20100115
  Serious: Yes (Life-Threatening, Hospitalization)
  Sender: FDA-Public Use
  Company Number: GB-ASTRAZENECA-2009SE09514

PATIENT
  Age: 21 Year
  Sex: Female
  Weight: 50 kg

DRUGS (5)
  1. QUETIAPINE [Suspect]
     Route: 048
     Dates: start: 20090811, end: 20090819
  2. CETIRIZINE HCL [Concomitant]
  3. METHADONE [Concomitant]
  4. MIRTAZAPINE [Concomitant]
  5. OLANZAPINE [Concomitant]

REACTIONS (2)
  - ERYTHEMA MULTIFORME [None]
  - LIP SWELLING [None]
